FAERS Safety Report 12158544 (Version 1)
Quarter: 2016Q1

REPORT INFORMATION
  Report Type: Spontaneous
  Country: US (occurrence: None)
  Receive Date: 20160307
  Receipt Date: 20160307
  Transmission Date: 20160526
  Serious: No
  Sender: FDA-Public Use
  Company Number: None

PATIENT
  Age: 44 Year
  Sex: Female
  Weight: 79.38 kg

DRUGS (12)
  1. FLOUXETINE [Concomitant]
  2. PROBIOTIC [Concomitant]
     Active Substance: PROBIOTICS NOS
  3. GLYBURIDE. [Suspect]
     Active Substance: GLYBURIDE
  4. OMEPRAZOLE. [Concomitant]
     Active Substance: OMEPRAZOLE
  5. GLUCOSAMINE/CHONDROITIN/MSM [Concomitant]
  6. MULTIVITAMIN [Concomitant]
     Active Substance: VITAMINS
  7. FARXIGA [Suspect]
     Active Substance: DAPAGLIFLOZIN PROPANEDIOL
     Indication: TYPE 2 DIABETES MELLITUS
     Dosage: 1 TABLET ONCE DAILY TAKEN BY MOUTH
     Route: 048
  8. METFORMIN [Concomitant]
     Active Substance: METFORMIN HYDROCHLORIDE
  9. BYDUREON [Concomitant]
     Active Substance: EXENATIDE
  10. ASPIRIN. [Concomitant]
     Active Substance: ASPIRIN
  11. FISH OIL [Concomitant]
     Active Substance: FISH OIL
  12. CETIRIZINE [Concomitant]
     Active Substance: CETIRIZINE HYDROCHLORIDE

REACTIONS (6)
  - Myalgia [None]
  - Fatigue [None]
  - Nausea [None]
  - Migraine [None]
  - Dizziness [None]
  - Fungal infection [None]

NARRATIVE: CASE EVENT DATE: 20160229
